FAERS Safety Report 8425495-8 (Version None)
Quarter: 2012Q2

REPORT INFORMATION
  Report Type: 
  Country: None (occurrence: None)
  Receive Date: 20120611
  Receipt Date: 20120601
  Transmission Date: 20120825
  Serious: Yes (Hospitalization, Other)
  Sender: FDA-Public Use
  Company Number: US-US-EMD SERONO, INC.-7048691

PATIENT
  Sex: Female
  Weight: 103 kg

DRUGS (2)
  1. OTHER UNSPECIFIED MEDICATIONS [Concomitant]
  2. REBIF [Suspect]
     Indication: MULTIPLE SCLEROSIS
     Route: 058
     Dates: start: 20030101

REACTIONS (5)
  - BIPOLAR DISORDER [None]
  - HERPES ZOSTER [None]
  - INJECTION SITE PAIN [None]
  - INJECTION SITE RASH [None]
  - HERPES SIMPLEX [None]
